FAERS Safety Report 10634151 (Version 1)
Quarter: 2014Q4

REPORT INFORMATION
  Report Type: Spontaneous
  Country: US (occurrence: None)
  Receive Date: 20141203
  Receipt Date: 20141203
  Transmission Date: 20150529
  Serious: Yes (Hospitalization)
  Sender: FDA-Public Use
  Company Number: 201411137

PATIENT
  Age: 69 Year
  Sex: Male

DRUGS (2)
  1. TESTOPEL [Suspect]
     Active Substance: TESTOSTERONE
     Indication: BLOOD TESTOSTERONE DECREASED
     Route: 058
     Dates: start: 20130814
  2. ANDROGEL [Suspect]
     Active Substance: TESTOSTERONE
     Indication: BLOOD TESTOSTERONE DECREASED
     Dates: start: 20110825

REACTIONS (8)
  - Subarachnoid haemorrhage [None]
  - Anxiety [None]
  - Pain [None]
  - Transient ischaemic attack [None]
  - Lacunar infarction [None]
  - Quality of life decreased [None]
  - Life expectancy shortened [None]
  - Economic problem [None]

NARRATIVE: CASE EVENT DATE: 20120127
